FAERS Safety Report 23971997 (Version 1)
Quarter: 2024Q2

REPORT INFORMATION
  Report Type: Report from Study
  Country: US (occurrence: US)
  Receive Date: 20240613
  Receipt Date: 20240613
  Transmission Date: 20240716
  Serious: Yes (Death)
  Sender: FDA-Public Use
  Company Number: US-BAYER-2024A085283

PATIENT
  Age: 88 Year
  Sex: Female
  Weight: 63.492 kg

DRUGS (12)
  1. ADEMPAS [Suspect]
     Active Substance: RIOCIGUAT
     Indication: Pulmonary arterial hypertension
     Dosage: UNK
     Dates: start: 20180719
  2. ADEMPAS [Suspect]
     Active Substance: RIOCIGUAT
     Indication: Pulmonary arterial hypertension
     Dosage: 2.5 MG, TID
     Route: 048
  3. CRESTOR [Concomitant]
     Active Substance: ROSUVASTATIN CALCIUM
  4. ELIQUIS [Concomitant]
     Active Substance: APIXABAN
  5. ALPHAGAN P [Concomitant]
     Active Substance: BRIMONIDINE TARTRATE
  6. ZIOPTAN [Concomitant]
     Active Substance: TAFLUPROST
  7. ALDACTONE [Concomitant]
     Active Substance: SPIRONOLACTONE
  8. DORZOLAMIDE [Concomitant]
     Active Substance: DORZOLAMIDE
  9. OXYGEN [Concomitant]
     Active Substance: OXYGEN
  10. AGRYLIN [Concomitant]
     Active Substance: ANAGRELIDE HYDROCHLORIDE
  11. LEXAPRO [Concomitant]
     Active Substance: ESCITALOPRAM OXALATE
  12. TORSEMIDE [Concomitant]
     Active Substance: TORSEMIDE

REACTIONS (1)
  - Death [Fatal]

NARRATIVE: CASE EVENT DATE: 20240504
